FAERS Safety Report 19182838 (Version 2)
Quarter: 2021Q2

REPORT INFORMATION
  Report Type: Report from Study
  Country: BR (occurrence: BR)
  Receive Date: 20210426
  Receipt Date: 20210526
  Transmission Date: 20210717
  Serious: Yes (Hospitalization, Other)
  Sender: FDA-Public Use
  Company Number: NVSC2021BR084007

PATIENT
  Age: 61 Year
  Sex: Male

DRUGS (3)
  1. ENTRESTO [Suspect]
     Active Substance: SACUBITRIL\VALSARTAN
     Dosage: 200 MG (97/103 MG), UNKNOWN
     Route: 048
  2. ENTRESTO [Suspect]
     Active Substance: SACUBITRIL\VALSARTAN
     Indication: CARDIAC FAILURE
     Dosage: 50 MG (24/26 MG), UNKNOWN
     Route: 048
     Dates: start: 202102, end: 20210310
  3. SIMVASTATIN. [Suspect]
     Active Substance: SIMVASTATIN
     Indication: CARDIAC DISORDER
     Dosage: UNK
     Route: 065

REACTIONS (10)
  - COVID-19 [Unknown]
  - Cardiac failure [Unknown]
  - Cardiac disorder [Not Recovered/Not Resolved]
  - Drug ineffective [Unknown]
  - Chest pain [Unknown]
  - Cardiac failure chronic [Unknown]
  - Cardiac dysfunction [Unknown]
  - Condition aggravated [Not Recovered/Not Resolved]
  - Myocardial infarction [Unknown]
  - Malaise [Unknown]

NARRATIVE: CASE EVENT DATE: 20210310
